FAERS Safety Report 15848547 (Version 1)
Quarter: 2019Q1

REPORT INFORMATION
  Report Type: Spontaneous
  Country: AT (occurrence: AT)
  Receive Date: 20190121
  Receipt Date: 20190121
  Transmission Date: 20190417
  Serious: Yes (Other)
  Sender: FDA-Public Use
  Company Number: AT-MYLANLABS-2019M1003325

PATIENT
  Sex: Male

DRUGS (4)
  1. RIOCIGUAT. [Suspect]
     Active Substance: RIOCIGUAT
     Indication: RIGHT VENTRICULAR FAILURE
     Dosage: SLOWLY TITRATED TO 2.5MG THREE TIMES A DAY
     Route: 065
  2. IMATINIB. [Suspect]
     Active Substance: IMATINIB MESYLATE
     Indication: RIGHT VENTRICULAR FAILURE
     Route: 065
  3. SILDENAFIL. [Suspect]
     Active Substance: SILDENAFIL
     Indication: PULMONARY HYPERTENSION
     Dosage: AT LOW DOSES AND UP-TITRATED TO 20MG THREE TIME A DAY
     Route: 065
  4. IMATINIB. [Suspect]
     Active Substance: IMATINIB MESYLATE
     Dosage: 100 MILLIGRAM
     Route: 065

REACTIONS (3)
  - Drug effect incomplete [Unknown]
  - Decreased appetite [Unknown]
  - Periorbital oedema [Unknown]
